FAERS Safety Report 10039124 (Version 1)
Quarter: 2014Q1

REPORT INFORMATION
  Report Type: Report from Study
  Country: AU (occurrence: AU)
  Receive Date: 20140326
  Receipt Date: 20140326
  Transmission Date: 20141002
  Serious: Yes (Other)
  Sender: FDA-Public Use
  Company Number: PHHY2014AU034479

PATIENT
  Sex: Female

DRUGS (2)
  1. ACLASTA [Suspect]
     Dosage: 5 MG, UNK
     Route: 042
     Dates: start: 20130115
  2. ACLASTA [Suspect]
     Dosage: 5 MG, UNK
     Route: 042
     Dates: start: 20140319

REACTIONS (5)
  - Fall [Recovering/Resolving]
  - Rib fracture [Recovering/Resolving]
  - Atelectasis [Recovering/Resolving]
  - Mass [Recovering/Resolving]
  - Headache [Recovering/Resolving]
